FAERS Safety Report 16995240 (Version 2)
Quarter: 2019Q4

REPORT INFORMATION
  Report Type: Report from Study
  Country: CL (occurrence: CL)
  Receive Date: 20191105
  Receipt Date: 20191125
  Transmission Date: 20200122
  Serious: Yes (Other)
  Sender: FDA-Public Use
  Company Number: PHHY2016CL143033

PATIENT
  Age: 50 Year
  Sex: Female

DRUGS (1)
  1. GILENYA [Suspect]
     Active Substance: FINGOLIMOD HYDROCHLORIDE
     Indication: MULTIPLE SCLEROSIS
     Dosage: UNK, QD
     Route: 048
     Dates: start: 20160613

REACTIONS (10)
  - Alanine aminotransferase increased [Unknown]
  - Affective disorder [Unknown]
  - Sleep disorder [Unknown]
  - Lymphocyte count decreased [Recovering/Resolving]
  - Blood alkaline phosphatase increased [Unknown]
  - Anxiety disorder [Unknown]
  - Aspartate aminotransferase increased [Unknown]
  - Gamma-glutamyltransferase increased [Unknown]
  - Blood cholesterol increased [Unknown]
  - Presbyopia [Unknown]

NARRATIVE: CASE EVENT DATE: 20160720
